FAERS Safety Report 20757556 (Version 1)
Quarter: 2022Q2

REPORT INFORMATION
  Report Type: Spontaneous
  Country: CO (occurrence: CO)
  Receive Date: 20220427
  Receipt Date: 20220427
  Transmission Date: 20220721
  Serious: Yes (Hospitalization, Other)
  Sender: FDA-Public Use
  Company Number: CO-PFIZER INC-202200602512

PATIENT
  Sex: Female

DRUGS (1)
  1. PALBOCICLIB [Suspect]
     Active Substance: PALBOCICLIB
     Indication: Breast disorder
     Dosage: 100 MG
     Route: 048
     Dates: start: 2021

REACTIONS (1)
  - Breast injury [Unknown]

NARRATIVE: CASE EVENT DATE: 20220408
